FAERS Safety Report 11982208 (Version 1)
Quarter: 2016Q1

REPORT INFORMATION
  Report Type: Report from Study
  Country: US (occurrence: US)
  Receive Date: 20160201
  Receipt Date: 20160201
  Transmission Date: 20160526
  Serious: No
  Sender: FDA-Public Use
  Company Number: US-AMGEN-USASL2016008781

PATIENT
  Age: 45 Year
  Sex: Female

DRUGS (1)
  1. ENBREL [Suspect]
     Active Substance: ETANERCEPT
     Indication: RHEUMATOID ARTHRITIS
     Dosage: 50 MG, 1WEEKLY
     Route: 065
     Dates: start: 20150316

REACTIONS (10)
  - Pharyngitis streptococcal [Unknown]
  - Pain [Unknown]
  - Joint swelling [Unknown]
  - Sinusitis [Unknown]
  - Ligament sprain [Unknown]
  - Swelling [Not Recovered/Not Resolved]
  - Contusion [Unknown]
  - Dry throat [Unknown]
  - Fall [Unknown]
  - Musculoskeletal pain [Unknown]

NARRATIVE: CASE EVENT DATE: 201508
